FAERS Safety Report 4766854-4 (Version None)
Quarter: 2005Q3

REPORT INFORMATION
  Report Type: 
  Country: None (occurrence: None)
  Receive Date: 20050909
  Receipt Date: 20050902
  Transmission Date: 20060218
  Serious: Yes (Hospitalization)
  Sender: FDA-Public Use
  Company Number: LNL-100125-NL

PATIENT
  Age: 21 Year
  Sex: Female

DRUGS (7)
  1. ROCURONIUM BROMIDE [Suspect]
     Indication: MUSCLE RELAXANT THERAPY
     Dosage: 30 MG ONCE INTRAVENOUS BOLUS
     Route: 040
     Dates: start: 19971203, end: 19971203
  2. PROPOFOL [Suspect]
     Indication: MUSCLE RELAXANT THERAPY
     Dosage: 190 MG ONCE INTRAVENOUS (NOS)
     Route: 042
     Dates: start: 19971203, end: 19971203
  3. MIDAZOLAM [Suspect]
     Indication: MUSCLE RELAXANT THERAPY
     Dosage: 3 MG ONCE INTRAVENOUS (NOS)
     Route: 042
     Dates: start: 19971203, end: 19971203
  4. FENTANYL CITRATE [Suspect]
     Indication: MUSCLE RELAXANT THERAPY
     Dosage: 100 UG ONCE INTRAVENOUS (NOS)
     Route: 042
     Dates: start: 19971203, end: 19971203
  5. SEVOFLURANE [Suspect]
     Indication: MUSCLE RELAXANT THERAPY
     Dosage: RESPIRATORY (INHALATION)
     Route: 055
     Dates: start: 19971203, end: 19971203
  6. NEOSTIGMINE METILSULFATE [Suspect]
     Indication: MUSCLE RELAXANT THERAPY
     Dosage: INTRAVENOUS (NOS)
     Route: 042
     Dates: start: 19971203, end: 19971203
  7. PIZOTIFEN MALEATE [Concomitant]

REACTIONS (2)
  - ASTHENIA [None]
  - HYPOAESTHESIA [None]
